FAERS Safety Report 6846832-1 (Version None)
Quarter: 2010Q3

REPORT INFORMATION
  Report Type: 
  Country: None (occurrence: None)
  Receive Date: 20100715
  Receipt Date: 20070920
  Transmission Date: 20110219
  Serious: No
  Sender: FDA-Public Use
  Company Number: US-PFIZER INC-2007080176

PATIENT
  Age: 52 Year
  Sex: Female
  Weight: 77.272 kg

DRUGS (5)
  1. CHANTIX [Suspect]
     Indication: SMOKING CESSATION THERAPY
     Dates: start: 20070825
  2. ZOLOFT [Concomitant]
  3. KLONOPIN [Concomitant]
  4. PREMARIN [Concomitant]
  5. ESTROTEST [Concomitant]

REACTIONS (5)
  - ABNORMAL DREAMS [None]
  - DYSGEUSIA [None]
  - FATIGUE [None]
  - MIDDLE INSOMNIA [None]
  - TONGUE ULCERATION [None]
